FAERS Safety Report 8323390-6 (Version None)
Quarter: 2012Q2

REPORT INFORMATION
  Report Type: 
  Country: None (occurrence: None)
  Receive Date: 20120430
  Receipt Date: 20120418
  Transmission Date: 20120825
  Serious: Yes (Other)
  Sender: FDA-Public Use
  Company Number: ES-ELI_LILLY_AND_COMPANY-ES201204006491

PATIENT
  Age: 44 Year
  Sex: Female

DRUGS (2)
  1. FOLIC ACID [Concomitant]
     Indication: PREGNANCY
  2. PROZAC [Suspect]
     Indication: DEPRESSION
     Dosage: 20 MG, QD

REACTIONS (2)
  - MATERNAL EXPOSURE DURING PREGNANCY [None]
  - ABORTION SPONTANEOUS [None]
